FAERS Safety Report 12753345 (Version 1)
Quarter: 2016Q3

REPORT INFORMATION
  Report Type: Other
  Country: FR (occurrence: FR)
  Receive Date: 20160916
  Receipt Date: 20160916
  Transmission Date: 20161109
  Serious: No
  Sender: FDA-Public Use
  Company Number: FR-LUPIN PHARMACEUTICALS INC.-2016-00808

PATIENT
  Sex: 0

DRUGS (2)
  1. CEFUROXIME. [Suspect]
     Active Substance: CEFUROXIME
     Indication: PROPHYLAXIS
     Route: 058
  2. CEFUROXIME. [Suspect]
     Active Substance: CEFUROXIME
     Dosage: INTRACAMERALLY

REACTIONS (1)
  - Conjunctivitis [Unknown]
